FAERS Safety Report 9411070 (Version 1)
Quarter: 2013Q3

REPORT INFORMATION
  Report Type: Spontaneous
  Country: US (occurrence: US)
  Receive Date: 20130720
  Receipt Date: 20130720
  Transmission Date: 20140515
  Serious: No
  Sender: FDA-Public Use
  Company Number: US-B.I. PHARMACEUTICALS,INC./RIDGEFIELD-2013-BI-20760BP

PATIENT
  Sex: Female

DRUGS (2)
  1. COMBIVENT [Suspect]
     Indication: CHRONIC OBSTRUCTIVE PULMONARY DISEASE
     Dosage: STRENGTH: 18 MCG / 103 MCG; DAILY DOSE: 72 MCG/ 400 MCG
     Route: 055
     Dates: start: 2012, end: 2013
  2. ADVAIR [Concomitant]
     Route: 055

REACTIONS (1)
  - Drug ineffective [Not Recovered/Not Resolved]
